FAERS Safety Report 25461895 (Version 2)
Quarter: 2025Q2

REPORT INFORMATION
  Report Type: Spontaneous
  Country: DE (occurrence: DE)
  Receive Date: 20250620
  Receipt Date: 20250626
  Transmission Date: 20250716
  Serious: Yes (Other)
  Sender: MYLAN
  Company Number: DE-MYLANLABS-2025M1052111

PATIENT
  Age: 58 Year
  Sex: Female

DRUGS (28)
  1. LORATADINE [Suspect]
     Active Substance: LORATADINE
     Indication: Chronic spontaneous urticaria
     Dosage: UNK, QD (AT UP TO 4-FOLD STANDARD DOSES, FOR SEVERAL WEEKS)
  2. LORATADINE [Suspect]
     Active Substance: LORATADINE
     Dosage: UNK, QD (AT UP TO 4-FOLD STANDARD DOSES, FOR SEVERAL WEEKS)
     Route: 065
  3. LORATADINE [Suspect]
     Active Substance: LORATADINE
     Dosage: UNK, QD (AT UP TO 4-FOLD STANDARD DOSES, FOR SEVERAL WEEKS)
     Route: 065
  4. LORATADINE [Suspect]
     Active Substance: LORATADINE
     Dosage: UNK, QD (AT UP TO 4-FOLD STANDARD DOSES, FOR SEVERAL WEEKS)
  5. CETIRIZINE [Suspect]
     Active Substance: CETIRIZINE HYDROCHLORIDE
     Indication: Chronic spontaneous urticaria
     Dosage: UNK, QD (AT UP TO 4-FOLD STANDARD DOSES, FOR SEVERAL WEEKS  )
  6. CETIRIZINE [Suspect]
     Active Substance: CETIRIZINE HYDROCHLORIDE
     Dosage: UNK, QD (AT UP TO 4-FOLD STANDARD DOSES, FOR SEVERAL WEEKS  )
     Route: 065
  7. CETIRIZINE [Suspect]
     Active Substance: CETIRIZINE HYDROCHLORIDE
     Dosage: UNK, QD (AT UP TO 4-FOLD STANDARD DOSES, FOR SEVERAL WEEKS  )
     Route: 065
  8. CETIRIZINE [Suspect]
     Active Substance: CETIRIZINE HYDROCHLORIDE
     Dosage: UNK, QD (AT UP TO 4-FOLD STANDARD DOSES, FOR SEVERAL WEEKS  )
  9. FEXOFENADINE [Suspect]
     Active Substance: FEXOFENADINE HYDROCHLORIDE
     Indication: Chronic spontaneous urticaria
     Dosage: UNK, QD (AT UP TO 4-FOLD STANDARD DOSES, FOR SEVERAL WEEKS)
  10. FEXOFENADINE [Suspect]
     Active Substance: FEXOFENADINE HYDROCHLORIDE
     Dosage: UNK, QD (AT UP TO 4-FOLD STANDARD DOSES, FOR SEVERAL WEEKS)
     Route: 065
  11. FEXOFENADINE [Suspect]
     Active Substance: FEXOFENADINE HYDROCHLORIDE
     Dosage: UNK, QD (AT UP TO 4-FOLD STANDARD DOSES, FOR SEVERAL WEEKS)
     Route: 065
  12. FEXOFENADINE [Suspect]
     Active Substance: FEXOFENADINE HYDROCHLORIDE
     Dosage: UNK, QD (AT UP TO 4-FOLD STANDARD DOSES, FOR SEVERAL WEEKS)
  13. ANAKINRA [Concomitant]
     Active Substance: ANAKINRA
     Indication: Schnitzler^s syndrome
     Dosage: 100 MILLIGRAM, QD
  14. ANAKINRA [Concomitant]
     Active Substance: ANAKINRA
     Dosage: 100 MILLIGRAM, QD
     Route: 058
  15. ANAKINRA [Concomitant]
     Active Substance: ANAKINRA
     Dosage: 100 MILLIGRAM, QD
     Route: 058
  16. ANAKINRA [Concomitant]
     Active Substance: ANAKINRA
     Dosage: 100 MILLIGRAM, QD
  17. CANAKINUMAB [Concomitant]
     Active Substance: CANAKINUMAB
     Indication: Schnitzler^s syndrome
  18. CANAKINUMAB [Concomitant]
     Active Substance: CANAKINUMAB
     Route: 065
  19. CANAKINUMAB [Concomitant]
     Active Substance: CANAKINUMAB
     Route: 065
  20. CANAKINUMAB [Concomitant]
     Active Substance: CANAKINUMAB
  21. PREDNISOLONE [Concomitant]
     Active Substance: PREDNISOLONE
     Indication: Chronic spontaneous urticaria
  22. PREDNISOLONE [Concomitant]
     Active Substance: PREDNISOLONE
  23. PREDNISOLONE [Concomitant]
     Active Substance: PREDNISOLONE
     Route: 065
  24. PREDNISOLONE [Concomitant]
     Active Substance: PREDNISOLONE
     Route: 065
  25. PREDNISOLONE [Concomitant]
     Active Substance: PREDNISOLONE
     Dosage: 5 MILLIGRAM, QW
  26. PREDNISOLONE [Concomitant]
     Active Substance: PREDNISOLONE
     Dosage: 5 MILLIGRAM, QW
  27. PREDNISOLONE [Concomitant]
     Active Substance: PREDNISOLONE
     Dosage: 5 MILLIGRAM, QW
     Route: 065
  28. PREDNISOLONE [Concomitant]
     Active Substance: PREDNISOLONE
     Dosage: 5 MILLIGRAM, QW
     Route: 065

REACTIONS (1)
  - Drug ineffective [Unknown]
